FAERS Safety Report 8638748 (Version 2)
Quarter: 2013Q1

REPORT INFORMATION
  Report Type: Spontaneous
  Country: DE (occurrence: DE)
  Receive Date: 20120627
  Receipt Date: 20130102
  Transmission Date: 20140127
  Serious: No
  Sender: FDA-Public Use
  Company Number: DE-ALEXION PHARMACEUTICALS INC.-A201201222

PATIENT
  Sex: Male

DRUGS (2)
  1. SOLIRIS 300MG [Suspect]
     Indication: PAROXYSMAL NOCTURNAL HAEMOGLOBINURIA
     Dosage: 600 MG, QW
     Route: 042
     Dates: start: 20120503, end: 20120529
  2. SOLIRIS 300MG [Suspect]
     Indication: APLASTIC ANAEMIA

REACTIONS (2)
  - Vasculitis [Recovered/Resolved]
  - Viral infection [Recovered/Resolved]
